FAERS Safety Report 6094734-3 (Version None)
Quarter: 2009Q1

REPORT INFORMATION
  Report Type: 
  Country: None (occurrence: None)
  Receive Date: 20090225
  Receipt Date: 20090210
  Transmission Date: 20090719
  Serious: Yes (Other)
  Sender: FDA-Public Use
  Company Number: 2009S1002344

PATIENT
  Age: 45 Year
  Sex: Male

DRUGS (7)
  1. CYCLOPHOSPHAMIDE [Suspect]
     Indication: BURKITT'S LYMPHOMA
  2. DOXORUBICIN HCL [Suspect]
     Indication: BURKITT'S LYMPHOMA
  3. VINCRISTINE [Suspect]
     Indication: BURKITT'S LYMPHOMA
  4. METHOTREXATE [Suspect]
     Indication: BURKITT'S LYMPHOMA
     Dosage: INTRATHECAL
     Route: 037
  5. CYTARABINE [Suspect]
     Indication: BURKITT'S LYMPHOMA
     Dosage: INTRATHECAL
     Route: 037
  6. IFOSFAMIDE [Suspect]
     Indication: BURKITT'S LYMPHOMA
  7. ETOPOSIDE [Suspect]
     Indication: BURKITT'S LYMPHOMA

REACTIONS (2)
  - ACUTE LYMPHOCYTIC LEUKAEMIA [None]
  - THROMBOCYTOPENIA [None]
